FAERS Safety Report 13965797 (Version 4)
Quarter: 2018Q1

REPORT INFORMATION
  Report Type: Spontaneous
  Country: JP (occurrence: JP)
  Receive Date: 20170913
  Receipt Date: 20180102
  Transmission Date: 20180508
  Serious: Yes (Congenital Anomaly, Other)
  Sender: FDA-Public Use
  Company Number: JP-TEVA-793846ISR

PATIENT
  Age: 22 Year
  Sex: Female
  Weight: 56 kg

DRUGS (1)
  1. MODIODAL TABLETS 100MG [Suspect]
     Active Substance: MODAFINIL
     Indication: HYPERSOMNIA
     Dosage: 100 MILLIGRAM DAILY;
     Route: 048
     Dates: start: 2015

REACTIONS (1)
  - Long QT syndrome congenital [Not Recovered/Not Resolved]
